FAERS Safety Report 18152986 (Version 2)
Quarter: 2023Q2

REPORT INFORMATION
  Report Type: Spontaneous
  Country: ES (occurrence: ES)
  Receive Date: 20200814
  Receipt Date: 20230405
  Transmission Date: 20230721
  Serious: Yes (Other)
  Sender: FDA-Public Use
  Company Number: None

PATIENT
  Age: 46 Year
  Sex: Female
  Weight: 65 kg

DRUGS (1)
  1. LEVOTHYROXINE SODIUM [Suspect]
     Active Substance: LEVOTHYROXINE SODIUM
     Indication: Hypothyroidism
     Dosage: 75 MICROGRAMS ONCE A DAY
     Route: 048
     Dates: start: 20200512

REACTIONS (3)
  - Gastritis [Recovering/Resolving]
  - Product formulation issue [Recovering/Resolving]
  - Reaction to excipient [Unknown]

NARRATIVE: CASE EVENT DATE: 20200501
